FAERS Safety Report 8152191 (Version 2)
Quarter: 2014Q1

REPORT INFORMATION
  Report Type: Report from Study
  Country: DE (occurrence: DE)
  Receive Date: 20110922
  Receipt Date: 20140306
  Transmission Date: 20141002
  Serious: Yes (Death, Hospitalization)
  Sender: FDA-Public Use
  Company Number: DE-CELGENEUS-062-50794-11072670

PATIENT
  Age: 84 Year
  Sex: Male
  Weight: 84 kg

DRUGS (2)
  1. VIDAZA [Suspect]
     Indication: MYELODYSPLASTIC SYNDROME
     Dosage: 75 MILLIGRAM/SQ. METER
     Route: 058
     Dates: start: 20110606, end: 20110715
  2. EXJADE [Concomitant]
     Indication: IRON OVERLOAD
     Dosage: 500 MILLIGRAM
     Route: 048
     Dates: start: 20110211

REACTIONS (2)
  - Facial bones fracture [Fatal]
  - Febrile infection [Recovered/Resolved]
